FAERS Safety Report 6103715-2 (Version None)
Quarter: 2009Q1

REPORT INFORMATION
  Report Type: 
  Country: None (occurrence: None)
  Receive Date: 20090302
  Receipt Date: 20090223
  Transmission Date: 20090719
  Serious: Yes (Other)
  Sender: FDA-Public Use
  Company Number: 198677

PATIENT
  Sex: Male

DRUGS (3)
  1. LEUCOVORIN CALCIUM [Suspect]
     Indication: COLON CANCER METASTATIC
     Dosage: INTRAVENOUS
     Route: 042
     Dates: start: 20080101, end: 20080101
  2. FLUOROURACIL [Suspect]
     Indication: COLON CANCER METASTATIC
     Dosage: INTRAVENOUS
     Dates: start: 20080101, end: 20080101
  3. OXALIPLATIN [Suspect]
     Indication: COLON CANCER METASTATIC
     Dosage: INTRAVENOUS
     Route: 042
     Dates: start: 20080101, end: 20080101

REACTIONS (1)
  - CEREBROVASCULAR ACCIDENT [None]
